FAERS Safety Report 5008208-1 (Version None)
Quarter: 2006Q2

REPORT INFORMATION
  Report Type: 
  Country: None (occurrence: None)
  Receive Date: 20060404
  Receipt Date: 20060126
  Transmission Date: 20061013
  Serious: No
  Sender: FDA-Public Use
  Company Number: US200601004807

PATIENT
  Age: 54 Year
  Sex: Female

DRUGS (3)
  1. CYMBALTA [Suspect]
     Dosage: 20 MG, DAILY (1/D)
     Dates: end: 20051201
  2. LAMICTAL [Concomitant]
  3. NIASPAN [Concomitant]

REACTIONS (4)
  - FACE OEDEMA [None]
  - HIRSUTISM [None]
  - RASH MACULAR [None]
  - SKIN DISORDER [None]
